FAERS Safety Report 4679678-3 (Version None)
Quarter: 2005Q2

REPORT INFORMATION
  Report Type: 
  Country: None (occurrence: None)
  Receive Date: 20050602
  Receipt Date: 20050523
  Transmission Date: 20051028
  Serious: Yes (Hospitalization)
  Sender: FDA-Public Use
  Company Number: US-KINGPHARMUSA00001-K200500667

PATIENT
  Age: 53 Year
  Sex: Female

DRUGS (4)
  1. ALTACE [Suspect]
     Indication: HYPERTENSION
     Dosage: 2.5 MG, QD
     Route: 048
     Dates: start: 20050410, end: 20050412
  2. NIMESULIDE [Concomitant]
     Indication: INFLAMMATION
     Dosage: 100 MG, UNK
     Route: 048
     Dates: start: 20050101, end: 20050101
  3. PARACETAMOL [Concomitant]
     Route: 048
     Dates: start: 20050101, end: 20050101
  4. CLOXAZOLAM [Concomitant]
     Dosage: 2 MG, UNK
     Route: 048
     Dates: start: 20030101

REACTIONS (11)
  - COUGH [None]
  - DYSPNOEA [None]
  - ERYTHEMA [None]
  - EYE PRURITUS [None]
  - EYELID OEDEMA [None]
  - FATIGUE [None]
  - MALAISE [None]
  - OEDEMA [None]
  - PALPITATIONS [None]
  - PRURITUS GENITAL [None]
  - TACHYCARDIA [None]
